FAERS Safety Report 9567780 (Version 1)
Quarter: 2013Q3

REPORT INFORMATION
  Report Type: Spontaneous
  Country: US (occurrence: US)
  Receive Date: 20130930
  Receipt Date: 20130930
  Transmission Date: 20140515
  Serious: No
  Sender: FDA-Public Use
  Company Number: US-AMGEN-USASP2013020780

PATIENT
  Age: 63 Year
  Sex: Male

DRUGS (1)
  1. ENBREL [Suspect]
     Indication: PSORIASIS
     Dosage: 50 MG, QWK
     Dates: start: 20100120

REACTIONS (4)
  - Malaise [Recovered/Resolved]
  - Asthenia [Recovered/Resolved]
  - Fungal infection [Not Recovered/Not Resolved]
  - Onychomycosis [Not Recovered/Not Resolved]
